FAERS Safety Report 13497606 (Version 2)
Quarter: 2018Q1

REPORT INFORMATION
  Report Type: Report from Study
  Country: None (occurrence: US)
  Receive Date: 20170501
  Receipt Date: 20180319
  Transmission Date: 20180508
  Serious: Yes (Hospitalization)
  Sender: FDA-Public Use
  Company Number: US-ABBVIE-17K-163-1866068-00

PATIENT
  Age: 58 Year
  Sex: Female

DRUGS (4)
  1. HUMIRA [Suspect]
     Active Substance: ADALIMUMAB
     Route: 058
  2. HUMIRA [Suspect]
     Active Substance: ADALIMUMAB
     Route: 058
     Dates: start: 2017
  3. HUMIRA [Suspect]
     Active Substance: ADALIMUMAB
     Route: 058
  4. HUMIRA [Suspect]
     Active Substance: ADALIMUMAB
     Indication: CROHN^S DISEASE
     Route: 058
     Dates: start: 201208, end: 201703

REACTIONS (5)
  - Diarrhoea [Recovering/Resolving]
  - Chronic obstructive pulmonary disease [Recovered/Resolved]
  - Fall [Unknown]
  - Device issue [Unknown]
  - Back injury [Unknown]

NARRATIVE: CASE EVENT DATE: 20170226
